FAERS Safety Report 23811704 (Version 2)
Quarter: 2024Q2

REPORT INFORMATION
  Report Type: Report from Study
  Country: US (occurrence: US)
  Receive Date: 20240503
  Receipt Date: 20240602
  Transmission Date: 20240716
  Serious: No
  Sender: FDA-Public Use
  Company Number: US-AstraZeneca-CH-00615473A

PATIENT
  Sex: Male

DRUGS (2)
  1. SOLIRIS [Suspect]
     Active Substance: ECULIZUMAB
     Indication: Atypical haemolytic uraemic syndrome
     Dosage: UNK
     Route: 041
  2. BELATACEPT [Concomitant]
     Active Substance: BELATACEPT
     Indication: Kidney transplant rejection
     Dosage: UNK
     Route: 065

REACTIONS (1)
  - Fatigue [Unknown]
